FAERS Safety Report 17811704 (Version 1)
Quarter: 2020Q2

REPORT INFORMATION
  Report Type: Spontaneous
  Country: GB (occurrence: GB)
  Receive Date: 20200521
  Receipt Date: 20200521
  Transmission Date: 20200714
  Serious: Yes (Life-Threatening, Hospitalization)
  Sender: FDA-Public Use
  Company Number: GB-PFIZER INC-2020201124

PATIENT
  Age: 60 Year
  Sex: Male
  Weight: 79 kg

DRUGS (5)
  1. ACETYLSALICYLIC ACID [Concomitant]
     Active Substance: ASPIRIN
  2. RAMIPRIL. [Concomitant]
     Active Substance: RAMIPRIL
  3. ATORVASTATIN [Concomitant]
     Active Substance: ATORVASTATIN
  4. SULFASALAZINE. [Suspect]
     Active Substance: SULFASALAZINE
     Indication: RHEUMATOID ARTHRITIS
     Dosage: STARTED ON 500MG DAILY AND INCREASED BY 500MG DAILY EVERY 7 DAYS
     Route: 048
     Dates: start: 20200313, end: 20200417
  5. LEFLUNOMIDE. [Suspect]
     Active Substance: LEFLUNOMIDE
     Indication: RHEUMATOID ARTHRITIS
     Dosage: 20 MG, 1X/DAY
     Route: 048
     Dates: start: 20180903, end: 20200426

REACTIONS (2)
  - Agranulocytosis [Not Recovered/Not Resolved]
  - Malaise [Unknown]
